FAERS Safety Report 26019983 (Version 1)
Quarter: 2025Q4

REPORT INFORMATION
  Report Type: Spontaneous
  Country: US (occurrence: US)
  Receive Date: 20251110
  Receipt Date: 20251110
  Transmission Date: 20260118
  Serious: No
  Sender: GALPHARM INTERNATIONAL
  Company Number: US-PERRIGO-25US002647

PATIENT
  Age: 86 Year
  Sex: Female

DRUGS (2)
  1. POLYETHYLENE GLYCOL 3350 [Suspect]
     Active Substance: POLYETHYLENE GLYCOL 3350
     Indication: Constipation
     Dosage: UNKNOWN, SINGLE
     Route: 048
     Dates: start: 20250224, end: 20250224
  2. MUCUS RELIEF [Concomitant]
     Active Substance: GUAIFENESIN
     Indication: Cough
     Dosage: UNKNOWN, UNKNOWN
     Route: 065
     Dates: start: 20250224, end: 20250224

REACTIONS (5)
  - Abdominal rigidity [Not Recovered/Not Resolved]
  - Dyspepsia [Not Recovered/Not Resolved]
  - Nausea [Not Recovered/Not Resolved]
  - Diarrhoea [Not Recovered/Not Resolved]
  - Underdose [Unknown]

NARRATIVE: CASE EVENT DATE: 20250224
